FAERS Safety Report 8011571-0 (Version None)
Quarter: 2011Q4

REPORT INFORMATION
  Report Type: 
  Country: None (occurrence: None)
  Receive Date: 20111228
  Receipt Date: 20111223
  Transmission Date: 20120403
  Serious: No
  Sender: FDA-Public Use
  Company Number: US-TEVA-315091USA

PATIENT
  Sex: Female
  Weight: 77.18 kg

DRUGS (2)
  1. MULTI-VITAMINS [Concomitant]
     Indication: MEDICAL DIET
  2. PLAN B ONE-STEP [Suspect]
     Indication: POST COITAL CONTRACEPTION
     Dosage: 1.5 MILLIGRAM;
     Route: 048
     Dates: start: 20111218, end: 20111218

REACTIONS (2)
  - PELVIC PAIN [None]
  - MENSTRUATION IRREGULAR [None]
